FAERS Safety Report 10155466 (Version 4)
Quarter: 2014Q2

REPORT INFORMATION
  Report Type: Report from Study
  Country: US (occurrence: US)
  Receive Date: 20140506
  Receipt Date: 20140529
  Transmission Date: 20141212
  Serious: Yes (Death, Hospitalization, Other)
  Sender: FDA-Public Use
  Company Number: US-JNJFOC-20140215153

PATIENT
  Age: 77 Year
  Sex: Male

DRUGS (22)
  1. ZYTIGA [Suspect]
     Indication: PROSTATE CANCER
     Dosage: 250 MG 4 TABLETS ALL AT ONCE
     Route: 048
     Dates: start: 201304
  2. CHEMOTHERAPY [Suspect]
     Indication: PRODUCT USED FOR UNKNOWN INDICATION
     Route: 065
  3. DOCETAXEL [Suspect]
     Indication: PRODUCT USED FOR UNKNOWN INDICATION
     Route: 065
  4. ZETIA [Concomitant]
     Route: 048
  5. LUPRON [Concomitant]
     Indication: PROSTATE CANCER
     Dosage: 7.5 ON THE KIT
     Route: 042
  6. AMLODIPINE BESYLATE [Concomitant]
     Indication: HYPERTENSION
     Route: 065
  7. AMLODIPINE BESYLATE [Concomitant]
     Indication: HYPERTENSION
     Route: 065
  8. ALLOPURINOL [Concomitant]
     Indication: BLOOD URIC ACID INCREASED
     Route: 065
  9. ALLOPURINOL [Concomitant]
     Indication: BLOOD URIC ACID INCREASED
     Route: 065
  10. PREDNISONE [Concomitant]
     Route: 065
  11. PREDNISONE [Concomitant]
     Route: 065
  12. METFORMIN [Concomitant]
     Indication: DIABETES MELLITUS
     Route: 065
  13. METFORMIN [Concomitant]
     Indication: DIABETES MELLITUS
     Route: 065
  14. LORADINE [Concomitant]
     Indication: HYPERSENSITIVITY
     Route: 065
  15. LORADINE [Concomitant]
     Indication: HYPERSENSITIVITY
     Route: 065
  16. VITAMIN D3 [Concomitant]
     Route: 065
  17. VITAMIN B6 [Concomitant]
     Route: 065
  18. VITAMIN B6 [Concomitant]
     Route: 065
  19. ASPIRIN [Concomitant]
     Indication: PRODUCT USED FOR UNKNOWN INDICATION
     Route: 065
  20. FISH OIL [Concomitant]
     Route: 065
  21. MULTIVITAMINS [Concomitant]
     Route: 065
  22. SIMVASTATIN [Concomitant]
     Route: 065

REACTIONS (6)
  - Pneumonia escherichia [Fatal]
  - Enterococcal sepsis [Fatal]
  - Renal failure acute [Unknown]
  - Neutropenia [Unknown]
  - Prostate cancer [Unknown]
  - Bone marrow failure [Unknown]
